FAERS Safety Report 25978859 (Version 1)
Quarter: 2025Q4

REPORT INFORMATION
  Report Type: Spontaneous
  Country: US (occurrence: US)
  Receive Date: 20251030
  Receipt Date: 20251030
  Transmission Date: 20260118
  Serious: Yes (Other)
  Sender: TEVA
  Company Number: US-TEVA-VS-3384033

PATIENT
  Age: 86 Year
  Sex: Male

DRUGS (2)
  1. QVAR REDIHALER [Suspect]
     Active Substance: BECLOMETHASONE DIPROPIONATE
     Indication: Product used for unknown indication
     Dosage: INHALATION AEROSOL, 80MCG/DOSE.
     Route: 065
  2. QVAR REDIHALER [Suspect]
     Active Substance: BECLOMETHASONE DIPROPIONATE
     Dosage: INHALATION AEROSOL, 80MCG/DOSE.
     Route: 065

REACTIONS (6)
  - Transient ischaemic attack [Unknown]
  - Memory impairment [Unknown]
  - Treatment noncompliance [Unknown]
  - Inappropriate schedule of product administration [Unknown]
  - Product dose omission issue [Unknown]
  - Device issue [Unknown]
